FAERS Safety Report 7629731-7 (Version None)
Quarter: 2011Q3

REPORT INFORMATION
  Report Type: 
  Country: None (occurrence: None)
  Receive Date: 20110722
  Receipt Date: 20110714
  Transmission Date: 20111222
  Serious: Yes (Hospitalization)
  Sender: FDA-Public Use
  Company Number: US-US-EMD SERONO, INC.-7071130

PATIENT
  Sex: Male
  Weight: 120 kg

DRUGS (5)
  1. REBIF [Suspect]
     Dates: start: 20110711
  2. GABAPENTIN [Concomitant]
     Indication: MYALGIA
     Dates: start: 20101201
  3. REBIF [Suspect]
     Indication: MULTIPLE SCLEROSIS
     Dates: start: 20080717, end: 20110620
  4. LEXAPRO [Concomitant]
     Indication: ANXIETY
  5. KLONOPIN [Concomitant]
     Indication: ANXIETY

REACTIONS (3)
  - CELLULITIS [None]
  - FATIGUE [None]
  - HEPATIC ENZYME INCREASED [None]
